FAERS Safety Report 24439049 (Version 2)
Quarter: 2024Q4

REPORT INFORMATION
  Report Type: Report from Study
  Country: US (occurrence: US)
  Receive Date: 20241015
  Receipt Date: 20241021
  Transmission Date: 20250115
  Serious: Yes (Hospitalization, Other)
  Sender: ABBVIE
  Company Number: US-ABBVIE-5961413

PATIENT
  Age: 79 Year
  Sex: Male
  Weight: 95 kg

DRUGS (2)
  1. LINZESS [Suspect]
     Active Substance: LINACLOTIDE
     Indication: Irritable bowel syndrome
     Dosage: 145 MICROGRAM
     Route: 048
     Dates: start: 2022
  2. LINZESS [Suspect]
     Active Substance: LINACLOTIDE
     Indication: Irritable bowel syndrome
     Route: 050

REACTIONS (3)
  - Pneumonia [Recovered/Resolved]
  - Pulmonary oedema [Recovered/Resolved]
  - COVID-19 [Recovered/Resolved]

NARRATIVE: CASE EVENT DATE: 20240501
